FAERS Safety Report 5740785-5 (Version None)
Quarter: 2008Q2

REPORT INFORMATION
  Report Type: 
  Country: None (occurrence: None)
  Receive Date: 20080516
  Receipt Date: 20080508
  Transmission Date: 20081010
  Serious: Yes (Hospitalization)
  Sender: FDA-Public Use
  Company Number: US-GENENTECH-260863

PATIENT
  Age: 57 Year
  Sex: Male
  Weight: 68.7 kg

DRUGS (12)
  1. BEVACIZUMAB [Suspect]
     Indication: NASOPHARYNGEAL CANCER
     Dosage: 15 MG/KG, UNK
     Route: 042
     Dates: start: 20080101
  2. FLUOROURACIL [Concomitant]
     Indication: NASOPHARYNGEAL CANCER
     Dosage: 1000 MG/M2, UNK
     Route: 042
     Dates: start: 20080320
  3. CISPLATIN [Concomitant]
     Indication: NASOPHARYNGEAL CANCER
     Dosage: 80 MG/M2, UNK
     Route: 042
     Dates: start: 20080101, end: 20080208
  4. RADIATION THERAPY [Concomitant]
     Indication: NASOPHARYNGEAL CANCER
     Dosage: UNK, UNK
     Dates: start: 20080101, end: 20080201
  5. ALLOPURINOL [Concomitant]
     Indication: DRUG USE FOR UNKNOWN INDICATION
     Dosage: 300 MG, QD
  6. LEXAPRO [Concomitant]
     Indication: DRUG USE FOR UNKNOWN INDICATION
     Dosage: 10 MG, QD
  7. KYTRIL [Concomitant]
     Indication: DRUG USE FOR UNKNOWN INDICATION
     Dosage: 1 MG, BID
     Route: 048
  8. REGLAN [Concomitant]
     Indication: DRUG USE FOR UNKNOWN INDICATION
     Dosage: 10 MG, QID
     Route: 048
  9. ATIVAN [Concomitant]
     Indication: ANXIETY
     Dosage: 1 MG, PRN
     Route: 048
  10. RANITIDINE [Concomitant]
     Indication: DRUG USE FOR UNKNOWN INDICATION
     Dosage: UNK, PRN
  11. FENTANYL CITRATE [Concomitant]
     Indication: DRUG USE FOR UNKNOWN INDICATION
     Dosage: 12 A?G, UNK
  12. OXYCODONE HCL [Concomitant]
     Indication: PAIN
     Dosage: 5 MG, UNK

REACTIONS (2)
  - FUNGAL INFECTION [None]
  - MUCOSAL INFLAMMATION [None]
